FAERS Safety Report 13537570 (Version 3)
Quarter: 2017Q3

REPORT INFORMATION
  Report Type: Spontaneous
  Country: DZ (occurrence: DZ)
  Receive Date: 20170511
  Receipt Date: 20170725
  Transmission Date: 20171127
  Serious: Yes (Death)
  Sender: FDA-Public Use
  Company Number: DZ-ABBVIE-17K-003-1972620-00

PATIENT
  Age: 39 Year
  Sex: Female
  Weight: 60 kg

DRUGS (2)
  1. AZATHIOPRINE. [Concomitant]
     Active Substance: AZATHIOPRINE
     Indication: DRUG THERAPY
     Route: 048
     Dates: start: 201603, end: 20170120
  2. HUMIRA [Suspect]
     Active Substance: ADALIMUMAB
     Indication: CROHN^S DISEASE
     Route: 058
     Dates: start: 20160703, end: 20161129

REACTIONS (5)
  - Peritonitis [Fatal]
  - Enterocutaneous fistula [Fatal]
  - Peritoneal tuberculosis [Fatal]
  - Post procedural complication [Fatal]
  - Intestinal obstruction [Fatal]

NARRATIVE: CASE EVENT DATE: 20170122
